FAERS Safety Report 17228805 (Version 1)
Quarter: 2019Q4

REPORT INFORMATION
  Report Type: Spontaneous
  Country: US (occurrence: US)
  Receive Date: 20191210
  Receipt Date: 20191210
  Transmission Date: 20200122
  Serious: No
  Sender: FDA-Public Use
  Company Number: None

PATIENT
  Age: 61 Year
  Sex: Male

DRUGS (1)
  1. SUTENT [Suspect]
     Active Substance: SUNITINIB MALATE
     Dosage: ?          OTHER DOSE:37.5MG;?
     Route: 048
     Dates: start: 20190816

REACTIONS (3)
  - Malaise [None]
  - Laboratory test abnormal [None]
  - Therapy change [None]

NARRATIVE: CASE EVENT DATE: 20191210
